FAERS Safety Report 13589118 (Version 1)
Quarter: 2017Q2

REPORT INFORMATION
  Report Type: Spontaneous
  Country: US (occurrence: US)
  Receive Date: 20170529
  Receipt Date: 20170529
  Transmission Date: 20170830
  Serious: No
  Sender: FDA-Public Use
  Company Number: US-INDOCO-000013

PATIENT
  Age: 86 Year
  Sex: Female
  Weight: 61.2 kg

DRUGS (4)
  1. ATENOLOL/ATENOLOL HYDROCHLORIDE [Concomitant]
     Dosage: ONLY TOOK 6 DOSES TO SEE IF IT WAS EFFECTING BLOOD SUGAR
     Dates: start: 20160829
  2. LOSARTAN. [Concomitant]
     Active Substance: LOSARTAN
  3. GLIMEPIRIDE. [Suspect]
     Active Substance: GLIMEPIRIDE
     Indication: DIABETES MELLITUS
     Dosage: STRENGTH: 2 MG?1 AT AM/PM
     Route: 048
     Dates: start: 201608
  4. SIMVASTATIN. [Concomitant]
     Active Substance: SIMVASTATIN
     Indication: PRODUCT USED FOR UNKNOWN INDICATION
     Dosage: STRENGTH: 20 MG

REACTIONS (1)
  - Drug ineffective [Unknown]
